FAERS Safety Report 21773331 (Version 2)
Quarter: 2023Q1

REPORT INFORMATION
  Report Type: Report from Study
  Country: CA (occurrence: None)
  Receive Date: 20221223
  Receipt Date: 20230201
  Transmission Date: 20230418
  Serious: Yes (Hospitalization, Other)
  Sender: FDA-Public Use
  Company Number: 2022A414066

PATIENT
  Age: 22233 Day
  Sex: Male

DRUGS (7)
  1. FASENRA [Suspect]
     Active Substance: BENRALIZUMAB
     Indication: Asthma
     Route: 058
     Dates: start: 20211118
  2. MONTELUKAST [Concomitant]
     Active Substance: MONTELUKAST SODIUM
  3. SPIRIVA [Concomitant]
     Active Substance: TIOTROPIUM BROMIDE MONOHYDRATE
  4. OMNARIS [Concomitant]
     Active Substance: CICLESONIDE
     Dosage: 50MCG/ACT 2 SPRAYS BID
     Route: 045
  5. BREO ELLIPTA [Concomitant]
     Active Substance: FLUTICASONE FUROATE\VILANTEROL TRIFENATATE
     Dosage: 200MCG/25MCG 1 PUFF OD
  6. VENTOLIN [Concomitant]
     Active Substance: ALBUTEROL SULFATE
     Dosage: 100MCG 2 PUFFS 4 X DAILY
  7. PREDNISONE [Concomitant]
     Active Substance: PREDNISONE
     Dosage: 50.0MG UNKNOWN

REACTIONS (7)
  - Rash [Recovering/Resolving]
  - Dyspnoea [Recovering/Resolving]
  - Syncope [Recovering/Resolving]
  - Muscle injury [Unknown]
  - Drug ineffective [Recovering/Resolving]
  - Flatulence [Recovering/Resolving]
  - Adverse event [Recovering/Resolving]

NARRATIVE: CASE EVENT DATE: 20221003
